FAERS Safety Report 10133574 (Version 2)
Quarter: 2015Q1

REPORT INFORMATION
  Report Type: Spontaneous
  Country: CA (occurrence: CA)
  Receive Date: 20140428
  Receipt Date: 20150123
  Transmission Date: 20150720
  Serious: Yes (Death, Other)
  Sender: FDA-Public Use
  Company Number: CA-VERTEX PHARMACEUTICALS INC-2014-002045

PATIENT

DRUGS (9)
  1. RIBAVIRIN. [Suspect]
     Active Substance: RIBAVIRIN
     Indication: HEPATITIS C
     Route: 065
  2. MYCOPHENOLATE MOFETIL. [Suspect]
     Active Substance: MYCOPHENOLATE MOFETIL
     Indication: IMMUNOSUPPRESSION
     Route: 065
  3. PREDNISONE. [Suspect]
     Active Substance: PREDNISONE
     Indication: IMMUNOSUPPRESSION
     Route: 065
  4. INCIVEK [Suspect]
     Active Substance: TELAPREVIR
     Indication: HEPATITIS C
     Route: 065
  5. TACROLIMUS. [Suspect]
     Active Substance: TACROLIMUS
     Indication: IMMUNOSUPPRESSION
     Route: 065
  6. PEGINTERFERON ALFA-2B [Suspect]
     Active Substance: PEGINTERFERON ALFA-2B
     Indication: HEPATITIS C
     Route: 065
  7. PEGINTERFERON ALFA-2A [Suspect]
     Active Substance: PEGINTERFERON ALFA-2A
     Indication: HEPATITIS C
     Route: 065
  8. BOCEPREVIR [Suspect]
     Active Substance: BOCEPREVIR
     Indication: HEPATITIS C
     Route: 065
  9. CYCLOSPORINE. [Suspect]
     Active Substance: CYCLOSPORINE
     Indication: IMMUNOSUPPRESSION
     Route: 065

REACTIONS (18)
  - Infection [Fatal]
  - Drug intolerance [Fatal]
  - Pancreatitis acute [Fatal]
  - Neutropenia [Fatal]
  - Hepatic encephalopathy [Fatal]
  - Anaemia [Fatal]
  - Mental disorder [Fatal]
  - Renal impairment [Fatal]
  - Myocardial infarction [Fatal]
  - Hepatic failure [Fatal]
  - Lower respiratory tract infection [Fatal]
  - Treatment failure [Fatal]
  - Portal vein thrombosis [Fatal]
  - Thrombocytopenia [Fatal]
  - Rash [Fatal]
  - Hepatic artery thrombosis [Fatal]
  - Ascites [Fatal]
  - Biliary sepsis [Fatal]

NARRATIVE: CASE EVENT DATE: 20150115
